FAERS Safety Report 6136316-0 (Version None)
Quarter: 2009Q1

REPORT INFORMATION
  Report Type: 
  Country: None (occurrence: None)
  Receive Date: 20090325
  Receipt Date: 20090316
  Transmission Date: 20090719
  Serious: Yes (Hospitalization, Other)
  Sender: FDA-Public Use
  Company Number: 2009SP005760

PATIENT
  Age: 49 Year
  Sex: Female

DRUGS (2)
  1. TEMOZOLOMIDE [Suspect]
     Indication: BREAST CANCER METASTATIC
     Dosage: 250 MG;
     Dates: start: 20090215, end: 20090219
  2. TOPOTECAN [Suspect]
     Indication: BREAST CANCER METASTATIC
     Dosage: 2.125 MG;
     Dates: start: 20090216, end: 20090220

REACTIONS (15)
  - CHEST PAIN [None]
  - CONSTIPATION [None]
  - DECREASED APPETITE [None]
  - DEHYDRATION [None]
  - DISEASE PROGRESSION [None]
  - DYSPNOEA [None]
  - FLATULENCE [None]
  - HEADACHE [None]
  - HYPOAESTHESIA [None]
  - METASTASES TO LIVER [None]
  - METASTASES TO LUNG [None]
  - NAUSEA [None]
  - PAIN [None]
  - VISION BLURRED [None]
  - VOMITING [None]
